FAERS Safety Report 18321535 (Version 2)
Quarter: 2024Q3

REPORT INFORMATION
  Report Type: Spontaneous
  Country: IT (occurrence: IT)
  Receive Date: 20200928
  Receipt Date: 20240927
  Transmission Date: 20241016
  Serious: Yes (Hospitalization)
  Sender: BAYER
  Company Number: None

PATIENT
  Age: 53 Year
  Sex: Male
  Weight: 72 kg

DRUGS (3)
  1. STIVARGA [Suspect]
     Active Substance: REGORAFENIB MONOHYDRATE
     Indication: Astrocytoma
     Dosage: 160 MG, QD
     Dates: start: 20200518
  2. LEVETIRACETAM [Concomitant]
     Active Substance: LEVETIRACETAM
     Dosage: UNK
  3. OMEPRAZOLE [Concomitant]
     Active Substance: OMEPRAZOLE
     Dosage: 20 MG, UNK

REACTIONS (5)
  - Large intestine perforation [Unknown]
  - Acute kidney injury [Unknown]
  - Polycythaemia [Unknown]
  - Abdominal pain [Unknown]
  - Product use in unapproved indication [None]

NARRATIVE: CASE EVENT DATE: 20200826
